FAERS Safety Report 7658131-9 (Version None)
Quarter: 2011Q3

REPORT INFORMATION
  Report Type: 
  Country: None (occurrence: None)
  Receive Date: 20110805
  Receipt Date: 20110726
  Transmission Date: 20111222
  Serious: Yes (Hospitalization)
  Sender: FDA-Public Use
  Company Number: US-BAYER-2011-037406

PATIENT
  Age: 71 Year
  Sex: Male
  Weight: 111 kg

DRUGS (5)
  1. SARGRAMOSTIM [Suspect]
     Indication: MALIGNANT MELANOMA
     Dosage: 250 ?G/KG, DAYS 1-14
     Route: 058
     Dates: start: 20110218, end: 20110414
  2. OXYCODONE HYDROCHLORIDE [Concomitant]
     Dosage: 10 MG, Q3HRS AS NEEDED
  3. MDX-010 [Suspect]
     Dosage: 10 MG/KG, DAY 1
     Route: 042
     Dates: start: 20110401, end: 20110401
  4. MDX-010 [Suspect]
     Indication: MALIGNANT MELANOMA
     Dosage: 10 MG/KG, DAY 1
     Route: 042
     Dates: start: 20110218, end: 20110218
  5. CELEBREX [Concomitant]
     Dosage: 100 MG, 2 TIMES AS NEEDED

REACTIONS (4)
  - MUSCULAR WEAKNESS [None]
  - HYPOALBUMINAEMIA [None]
  - DRY SKIN [None]
  - ARTHRITIS [None]
